FAERS Safety Report 11075398 (Version 1)
Quarter: 2015Q2

REPORT INFORMATION
  Report Type: Spontaneous
  Country: CA (occurrence: CA)
  Receive Date: 20150429
  Receipt Date: 20150429
  Transmission Date: 20150821
  Serious: Yes (Other)
  Sender: FDA-Public Use
  Company Number: CA-ASTRAZENECA-2015SE37401

PATIENT
  Age: 66 Year
  Sex: Male

DRUGS (1)
  1. CRESTOR [Suspect]
     Active Substance: ROSUVASTATIN CALCIUM
     Route: 048

REACTIONS (11)
  - Palpitations [Unknown]
  - Fatigue [Unknown]
  - Tendon pain [Unknown]
  - Confusional state [Unknown]
  - Amnesia [Unknown]
  - Myalgia [Unknown]
  - Yellow skin [Unknown]
  - Pruritus [Unknown]
  - Chromaturia [Unknown]
  - Arthralgia [Unknown]
  - Depression [Unknown]
